FAERS Safety Report 21904932 (Version 2)
Quarter: 2023Q1

REPORT INFORMATION
  Report Type: Spontaneous
  Country: US (occurrence: IE)
  Receive Date: 20230124
  Receipt Date: 20230214
  Transmission Date: 20230417
  Serious: No
  Sender: FDA-Public Use
  Company Number: US-PFIZER INC-202300029196

PATIENT
  Age: 70 Year
  Sex: Female
  Weight: 102.06 kg

DRUGS (1)
  1. IBRANCE [Suspect]
     Active Substance: PALBOCICLIB
     Indication: Breast cancer metastatic
     Dosage: 125 MG, ONCE A DAY BY MOUTH FOR 21 DAYS, THEN 7 DAYS OFF
     Route: 048
     Dates: start: 2019

REACTIONS (2)
  - Nausea [Recovering/Resolving]
  - Alopecia [Not Recovered/Not Resolved]

NARRATIVE: CASE EVENT DATE: 20190301
